FAERS Safety Report 12604349 (Version 1)
Quarter: 2016Q3

REPORT INFORMATION
  Report Type: Report from Study
  Country: FR (occurrence: FR)
  Receive Date: 20160728
  Receipt Date: 20160728
  Transmission Date: 20161109
  Serious: Yes (Other)
  Sender: FDA-Public Use
  Company Number: PHHO2016FR007956

PATIENT
  Age: 60 Year
  Sex: Male
  Weight: 69 kg

DRUGS (3)
  1. DABRAFENIB [Suspect]
     Active Substance: DABRAFENIB
     Indication: MALIGNANT MELANOMA
     Dosage: 150 MG, BID
     Route: 048
     Dates: start: 20160404, end: 20160529
  2. MEDROL [Concomitant]
     Active Substance: METHYLPREDNISOLONE
     Indication: HEADACHE
     Dosage: 28 MG, QD (20 MG MATIN + 8 MG SOIR)
     Route: 048
     Dates: start: 20160502
  3. TRAMETINIB [Suspect]
     Active Substance: TRAMETINIB
     Indication: MALIGNANT MELANOMA
     Dosage: 2 MG, QD
     Route: 048
     Dates: start: 20160404, end: 20160529

REACTIONS (1)
  - Liver disorder [Recovered/Resolved]

NARRATIVE: CASE EVENT DATE: 20160530
